FAERS Safety Report 4963978-3 (Version None)
Quarter: 2006Q2

REPORT INFORMATION
  Report Type: 
  Country: None (occurrence: None)
  Receive Date: 20060405
  Receipt Date: 20050719
  Transmission Date: 20061013
  Serious: Yes (Hospitalization, Other)
  Sender: FDA-Public Use
  Company Number: US-MERCK-0507USA03131

PATIENT
  Age: 67 Year
  Sex: Male
  Weight: 132 kg

DRUGS (1)
  1. VIOXX [Suspect]
     Indication: ARTHRITIS
     Route: 048
     Dates: start: 19991022, end: 20040930

REACTIONS (23)
  - ANGINA PECTORIS [None]
  - ANGINA UNSTABLE [None]
  - ARRHYTHMIA [None]
  - ASTHENIA [None]
  - ATRIAL FIBRILLATION [None]
  - BACK DISORDER [None]
  - BRONCHITIS [None]
  - CARDIAC DISORDER [None]
  - CEREBROVASCULAR ACCIDENT [None]
  - CHEST PAIN [None]
  - CONVULSION [None]
  - DIZZINESS POSTURAL [None]
  - FALL [None]
  - HEADACHE [None]
  - HYPERTENSION [None]
  - LETHARGY [None]
  - LUNG NEOPLASM [None]
  - MUSCULOSKELETAL CHEST PAIN [None]
  - NEUTROPENIA [None]
  - PAIN [None]
  - RIB FRACTURE [None]
  - SUPRAVENTRICULAR TACHYCARDIA [None]
  - URINARY TRACT INFECTION [None]
